FAERS Safety Report 4654033-0 (Version None)
Quarter: 2005Q2

REPORT INFORMATION
  Report Type: 
  Country: None (occurrence: None)
  Receive Date: 20050504
  Receipt Date: 20050421
  Transmission Date: 20051028
  Serious: Yes (Hospitalization)
  Sender: FDA-Public Use
  Company Number: CA-2004-035863

PATIENT
  Age: 46 Year
  Sex: Male

DRUGS (6)
  1. BETASERON [Suspect]
     Indication: RELAPSING-REMITTING MULTIPLE SCLEROSIS
     Dosage: 8 MIU,  EVERY 2D, SUBCUTANEOUS
     Route: 058
     Dates: start: 20040828
  2. AMANTADINE (AMANTADINE) [Concomitant]
  3. SOFLAX (DOCUSATE SODIUM) [Concomitant]
  4. BACLOFEN [Concomitant]
  5. AXID [Concomitant]
  6. LIPITOR [Concomitant]

REACTIONS (12)
  - ABDOMINAL PAIN [None]
  - CHILLS [None]
  - CHOLECYSTECTOMY [None]
  - CONDITION AGGRAVATED [None]
  - DECREASED APPETITE [None]
  - DRUG DOSE OMISSION [None]
  - HYPERHIDROSIS [None]
  - MALAISE [None]
  - MULTIPLE SCLEROSIS [None]
  - NAUSEA [None]
  - POST PROCEDURAL PAIN [None]
  - VOMITING [None]
